FAERS Safety Report 11897651 (Version 1)
Quarter: 2016Q1

REPORT INFORMATION
  Report Type: Spontaneous
  Country: FR (occurrence: FR)
  Receive Date: 20160108
  Receipt Date: 20160108
  Transmission Date: 20160526
  Serious: Yes (Hospitalization)
  Sender: FDA-Public Use
  Company Number: FR-ACCORD-036913

PATIENT
  Age: 49 Year
  Sex: Female

DRUGS (7)
  1. VELCADE [Suspect]
     Active Substance: BORTEZOMIB
     Indication: PLASMA CELL MYELOMA
     Dosage: STRENGTH 3.5 MG
     Route: 058
     Dates: start: 20151211
  2. ERYTHROCINE [Suspect]
     Active Substance: ERYTHROMYCIN
     Indication: PRODUCT USED FOR UNKNOWN INDICATION
     Route: 042
     Dates: start: 20151210, end: 20151215
  3. DUROGESIC [Suspect]
     Active Substance: FENTANYL
     Indication: PRODUCT USED FOR UNKNOWN INDICATION
     Dosage: RECEIVED ON 12-DEC-2015 AND ON 15-DEC-2015
     Route: 062
     Dates: start: 20151212
  4. ENDOXAN [Concomitant]
     Active Substance: CYCLOPHOSPHAMIDE
     Indication: PLASMA CELL MYELOMA
     Dosage: STRENGTH: 50 MG
     Route: 048
     Dates: start: 20151211, end: 20151211
  5. DEXAMETHASONE MYLAN [Concomitant]
     Active Substance: DEXAMETHASONE
     Indication: PLASMA CELL MYELOMA
     Route: 042
     Dates: start: 20151212, end: 20151215
  6. ONDANSETRON ACCORD [Suspect]
     Active Substance: ONDANSETRON
     Indication: VOMITING
     Dosage: ALSO RECEIVED AT AN UNKNOWN DOSE DURING 2ND CYCLE OF CHEMOTHERAPY AND WITHDRAWN ON 15-DEC-2015
     Route: 042
     Dates: end: 20151215
  7. PRIMPERAN [Suspect]
     Active Substance: METOCLOPRAMIDE HYDROCHLORIDE
     Indication: VOMITING
     Dosage: RECEIVED 2ND CYCLE FROM 12-DEC-2015.
     Route: 042
     Dates: start: 20151212

REACTIONS (1)
  - Posterior reversible encephalopathy syndrome [Recovered/Resolved]

NARRATIVE: CASE EVENT DATE: 20151215
